FAERS Safety Report 5521284-2 (Version None)
Quarter: 2007Q4

REPORT INFORMATION
  Report Type: 
  Country: None (occurrence: None)
  Receive Date: 20071119
  Receipt Date: 20071024
  Transmission Date: 20080405
  Serious: No
  Sender: FDA-Public Use
  Company Number: US-BOEHRINGER INGELHEIM PHARMACEUTICALS, INC.-2007-BP-22516BP

PATIENT
  Age: 76 Year
  Sex: Female

DRUGS (10)
  1. MIRAPEX [Suspect]
     Indication: RESTLESS LEGS SYNDROME
     Route: 048
     Dates: end: 20071011
  2. NEXIUM [Concomitant]
  3. BENICAR [Concomitant]
  4. METFORMIN HYDROCHLORIDE [Concomitant]
  5. CYMBALTA [Concomitant]
  6. FUROSEMIDE [Concomitant]
  7. GLIPIZIDE [Concomitant]
  8. LEVOTHYROXINE SODIUM [Concomitant]
  9. ASPIRIN [Concomitant]
  10. FLUTICASONE CREAM [Concomitant]

REACTIONS (5)
  - HYPOAESTHESIA [None]
  - PAIN IN EXTREMITY [None]
  - PARAESTHESIA [None]
  - SENSORY LOSS [None]
  - SOMNOLENCE [None]
